FAERS Safety Report 4290965-3 (Version None)
Quarter: 2004Q1

REPORT INFORMATION
  Report Type: 
  Country: None (occurrence: None)
  Receive Date: 20040206
  Receipt Date: 20040206
  Transmission Date: 20041129
  Serious: No
  Sender: FDA-Public Use
  Company Number: None

PATIENT

DRUGS (1)
  1. LUMIGAN [Suspect]

REACTIONS (7)
  - ABNORMAL BEHAVIOUR [None]
  - ARTHRALGIA [None]
  - EPISTAXIS [None]
  - FEELING ABNORMAL [None]
  - HEARING IMPAIRED [None]
  - NASAL CONGESTION [None]
  - SKIN DISCOLOURATION [None]
